FAERS Safety Report 25607338 (Version 3)
Quarter: 2025Q3

REPORT INFORMATION
  Report Type: Spontaneous
  Country: US (occurrence: US)
  Receive Date: 20250725
  Receipt Date: 20250828
  Transmission Date: 20251020
  Serious: No
  Sender: SANOFI AVENTIS
  Company Number: US-SA-2025SA212991

PATIENT
  Age: 39 Year
  Sex: Male

DRUGS (1)
  1. DUPIXENT [Suspect]
     Active Substance: DUPILUMAB
     Indication: Eosinophilic oesophagitis
     Dosage: 300 MG, QW
     Route: 058
     Dates: start: 202505

REACTIONS (12)
  - Abdominal pain upper [Recovered/Resolved]
  - Pain [Unknown]
  - Blood urine present [Recovered/Resolved]
  - Abdominal pain lower [Unknown]
  - Oesophagitis [Unknown]
  - Myalgia [Recovered/Resolved]
  - Injection site rash [Unknown]
  - Injection site pain [Recovered/Resolved]
  - Condition aggravated [Recovered/Resolved]
  - Injection site bruising [Recovered/Resolved]
  - Arthralgia [Unknown]
  - Injection site pruritus [Unknown]

NARRATIVE: CASE EVENT DATE: 20250101
